FAERS Safety Report 19483973 (Version 1)
Quarter: 2021Q3

REPORT INFORMATION
  Report Type: Report from Study
  Country: FR (occurrence: FR)
  Receive Date: 20210701
  Receipt Date: 20210701
  Transmission Date: 20211014
  Serious: Yes (Hospitalization, Other)
  Sender: FDA-Public Use
  Company Number: FR-TAKEDA-FR201926679

PATIENT
  Age: 65 Year
  Sex: Female
  Weight: 40 kg

DRUGS (27)
  1. TEDUGLUTIDE [Suspect]
     Active Substance: TEDUGLUTIDE
     Dosage: 1.6 MILLIGRAM, 7 DOSES PER WEEK
     Route: 065
     Dates: start: 20171209, end: 20180103
  2. TEDUGLUTIDE [Suspect]
     Active Substance: TEDUGLUTIDE
     Dosage: 1.6 MILLIGRAM, 7 DOSES PER WEEK
     Route: 065
     Dates: start: 20171209, end: 20180103
  3. TEDUGLUTIDE [Suspect]
     Active Substance: TEDUGLUTIDE
     Indication: SHORT-BOWEL SYNDROME
     Dosage: 2 MILLIGRAM, 7DOSES PER WEEK
     Route: 065
     Dates: start: 20160322, end: 20160920
  4. TEDUGLUTIDE [Suspect]
     Active Substance: TEDUGLUTIDE
     Dosage: 1.6 MILLIGRAM, 7 DOSES PER WEEK
     Route: 065
     Dates: start: 20180103
  5. TEDUGLUTIDE [Suspect]
     Active Substance: TEDUGLUTIDE
     Dosage: 1.6 MILLIGRAM, 7 DOSES PER WEEK
     Route: 065
     Dates: start: 20180103
  6. CERNEVIT [Concomitant]
     Active Substance: VITAMINS
     Indication: SUPPLEMENTATION THERAPY
     Dosage: UNK
     Route: 065
  7. REANUTRIFLEX LIPIDE G 144/N 8/E [Concomitant]
     Active Substance: AMINO ACIDS\DEXTROSE\ELECTROLYTES NOS\SOYBEAN OIL
     Indication: SUPPLEMENTATION THERAPY
     Route: 065
  8. TEDUGLUTIDE [Suspect]
     Active Substance: TEDUGLUTIDE
     Dosage: 1.8 MILLIGRAM, 7 DOSES PER WEEK
     Route: 065
     Dates: start: 20160920, end: 20171130
  9. TEDUGLUTIDE [Suspect]
     Active Substance: TEDUGLUTIDE
     Dosage: 1.8 MILLIGRAM, 7 DOSES PER WEEK
     Route: 065
     Dates: start: 20160920, end: 20171130
  10. TEDUGLUTIDE [Suspect]
     Active Substance: TEDUGLUTIDE
     Dosage: 1.6 MILLIGRAM, 7 DOSES PER WEEK
     Route: 065
     Dates: start: 20180103
  11. TEDUGLUTIDE [Suspect]
     Active Substance: TEDUGLUTIDE
     Dosage: 1.6 MILLIGRAM, 7 DOSES PER WEEK
     Route: 065
     Dates: start: 20180103
  12. EUPANTOL [Concomitant]
     Active Substance: PANTOPRAZOLE SODIUM
     Indication: GASTRITIS
     Dosage: UNK
     Route: 065
  13. NICOPATCH [Concomitant]
     Active Substance: NICOTINE
     Indication: SMOKING CESSATION THERAPY
     Dosage: 21 MILLIGRAM, QD
     Route: 058
  14. MAGNESIUM CITRATE. [Concomitant]
     Active Substance: MAGNESIUM CITRATE
     Indication: SUPPLEMENTATION THERAPY
     Dosage: 200 MILLIGRAM, BID
     Route: 048
     Dates: start: 20190218, end: 2020
  15. TEDUGLUTIDE [Suspect]
     Active Substance: TEDUGLUTIDE
     Dosage: 1.8 MILLIGRAM, 7 DOSES PER WEEK
     Route: 065
     Dates: start: 20160920, end: 20171130
  16. TEDUGLUTIDE [Suspect]
     Active Substance: TEDUGLUTIDE
     Dosage: 1.6 MILLIGRAM, 7 DOSES PER WEEK
     Route: 065
     Dates: start: 20171130, end: 20171209
  17. TEDUGLUTIDE [Suspect]
     Active Substance: TEDUGLUTIDE
     Dosage: 1.6 MILLIGRAM, 7 DOSES PER WEEK
     Route: 065
     Dates: start: 20171209, end: 20180103
  18. TEDUGLUTIDE [Suspect]
     Active Substance: TEDUGLUTIDE
     Indication: SHORT-BOWEL SYNDROME
     Dosage: 2 MILLIGRAM, 7DOSES PER WEEK
     Route: 065
     Dates: start: 20160322, end: 20160920
  19. TEDUGLUTIDE [Suspect]
     Active Substance: TEDUGLUTIDE
     Dosage: 1.6 MILLIGRAM, 7 DOSES PER WEEK
     Route: 065
     Dates: start: 20171209, end: 20180103
  20. EUPANTOL [Concomitant]
     Active Substance: PANTOPRAZOLE SODIUM
     Indication: GASTROOESOPHAGEAL REFLUX DISEASE
  21. ACLASTA [Concomitant]
     Active Substance: ZOLEDRONIC ACID
     Indication: OSTEOPOROSIS PROPHYLAXIS
     Dosage: 5 MILLIGRAM, ONCE A YEAR
     Route: 042
     Dates: start: 20200316
  22. TEDUGLUTIDE [Suspect]
     Active Substance: TEDUGLUTIDE
     Indication: SHORT-BOWEL SYNDROME
     Dosage: 2 MILLIGRAM, 7DOSES PER WEEK
     Route: 065
     Dates: start: 20160322, end: 20160920
  23. TEDUGLUTIDE [Suspect]
     Active Substance: TEDUGLUTIDE
     Dosage: 1.6 MILLIGRAM, 7 DOSES PER WEEK
     Route: 065
     Dates: start: 20171130, end: 20171209
  24. TEDUGLUTIDE [Suspect]
     Active Substance: TEDUGLUTIDE
     Dosage: 1.6 MILLIGRAM, 7 DOSES PER WEEK
     Route: 065
     Dates: start: 20171130, end: 20171209
  25. TEDUGLUTIDE [Suspect]
     Active Substance: TEDUGLUTIDE
     Indication: SHORT-BOWEL SYNDROME
     Dosage: 2 MILLIGRAM, 7DOSES PER WEEK
     Route: 065
     Dates: start: 20160322, end: 20160920
  26. TEDUGLUTIDE [Suspect]
     Active Substance: TEDUGLUTIDE
     Dosage: 1.8 MILLIGRAM, 7 DOSES PER WEEK
     Route: 065
     Dates: start: 20160920, end: 20171130
  27. TEDUGLUTIDE [Suspect]
     Active Substance: TEDUGLUTIDE
     Dosage: 1.6 MILLIGRAM, 7 DOSES PER WEEK
     Route: 065
     Dates: start: 20171130, end: 20171209

REACTIONS (5)
  - Complication associated with device [Recovered/Resolved]
  - Subclavian vein thrombosis [Not Recovered/Not Resolved]
  - Venous stenosis [Not Recovered/Not Resolved]
  - Brachiocephalic vein thrombosis [Not Recovered/Not Resolved]
  - Brachiocephalic artery stenosis [Recovered/Resolved]

NARRATIVE: CASE EVENT DATE: 20190205
